FAERS Safety Report 5339893-2 (Version None)
Quarter: 2007Q2

REPORT INFORMATION
  Report Type: 
  Country: None (occurrence: None)
  Receive Date: 20070529
  Receipt Date: 20070523
  Transmission Date: 20071010
  Serious: Yes (Death, Hospitalization)
  Sender: FDA-Public Use
  Company Number: 062-C5013-06060845

PATIENT
  Age: 64 Year
  Sex: Female
  Weight: 48.5 kg

DRUGS (11)
  1. CC-5013 (LENALIDOMIDE) (CAPSULES) [Suspect]
     Indication: MULTIPLE MYELOMA
     Dosage: 25 MG, DAILY;
     Dates: start: 20060218, end: 20060310
  2. DEXAMETHASONE TAB [Concomitant]
  3. BERODUAL (DUOVENT) [Concomitant]
  4. ACICLOVIR (ACICLOVIR) (400 MILLIGRAM) [Concomitant]
  5. LASIX (FUROSEMIDE) (40 MILLIGRAM) [Concomitant]
  6. CASPOFUNGIN (CASPOFUNGIN) (50 MILLIGRAM) [Concomitant]
  7. PANTOZOL (PANTOPRAZOLE SODIUM) (40 MILLIGRAM) [Concomitant]
  8. MOVICOL (NULYTELY) [Concomitant]
  9. DIFLUCAN (FLUCONAZOLE) (200 MILLIGRAM) [Concomitant]
  10. ROCEFIN (CEFTRIAXONE SODIUM) [Concomitant]
  11. TRAMAL (TRAMADOL HYDROCHLORIDE) (20 MILLIGRAM) [Concomitant]

REACTIONS (16)
  - BRONCHOPNEUMONIA [None]
  - CATHETER RELATED COMPLICATION [None]
  - CATHETER THROMBOSIS [None]
  - DIARRHOEA [None]
  - DYSPHAGIA [None]
  - GENERAL PHYSICAL HEALTH DETERIORATION [None]
  - LYMPHADENOPATHY MEDIASTINAL [None]
  - MULTI-ORGAN FAILURE [None]
  - NECK PAIN [None]
  - OESOPHAGEAL CANDIDIASIS [None]
  - PANCYTOPENIA [None]
  - PERIPHERAL ARTERIAL OCCLUSIVE DISEASE [None]
  - PLEURAL EFFUSION [None]
  - PNEUMONIA FUNGAL [None]
  - TONGUE COATED [None]
  - URINARY RETENTION [None]
